FAERS Safety Report 6089710-0 (Version None)
Quarter: 2009Q1

REPORT INFORMATION
  Report Type: 
  Country: None (occurrence: None)
  Receive Date: 20090220
  Receipt Date: 20090220
  Transmission Date: 20090719
  Serious: Yes (Hospitalization, Other)
  Sender: FDA-Public Use
  Company Number: None

PATIENT
  Age: 55 Year
  Sex: Male
  Weight: 108.8633 kg

DRUGS (1)
  1. LEXISCAN [Suspect]
     Indication: CARDIAC STRESS TEST
     Dosage: ONCE IV
     Route: 042
     Dates: start: 20090217, end: 20090217

REACTIONS (9)
  - BLOOD PRESSURE IMMEASURABLE [None]
  - CHEST DISCOMFORT [None]
  - CONVULSION [None]
  - DIZZINESS [None]
  - FEELING HOT [None]
  - HEART RATE DECREASED [None]
  - HYPERHIDROSIS [None]
  - LOSS OF CONSCIOUSNESS [None]
  - RESPIRATORY ARREST [None]
